FAERS Safety Report 8796562 (Version 1)
Quarter: 2012Q4

REPORT INFORMATION
  Report Type: 
  Country: US (occurrence: US)
  Receive Date: 20120920
  Receipt Date: 20120920
  Transmission Date: 20130627
  Serious: Yes (Other)
  Sender: FDA-Public Use
  Company Number: PHEH2012US017906

PATIENT
  Sex: Female

DRUGS (1)
  1. EXJADE [Suspect]
     Route: 048

REACTIONS (1)
  - Blood glucose increased [Unknown]
